FAERS Safety Report 7291742-1 (Version None)
Quarter: 2011Q1

REPORT INFORMATION
  Report Type: 
  Country: None (occurrence: None)
  Receive Date: 20110214
  Receipt Date: 20110209
  Transmission Date: 20110831
  Serious: Yes (Other)
  Sender: FDA-Public Use
  Company Number: BR-PFIZER INC-2010175399

PATIENT
  Age: 60 Year
  Sex: Male

DRUGS (5)
  1. CHAMPIX [Suspect]
     Indication: TOBACCO USER
     Dosage: UNK
     Route: 048
     Dates: start: 20101101
  2. GEODON [Concomitant]
     Indication: DEPRESSION
     Dosage: UNK
     Dates: start: 20100601
  3. CHAMPIX [Suspect]
     Dosage: 1 MG, 2X/DAY, EVERY 12 HOURS
     Route: 048
  4. TEGRETOL [Concomitant]
     Indication: DEPRESSION
     Dosage: UNK
     Dates: start: 20100601
  5. RIVOTRIL [Concomitant]
     Indication: SLEEP DISORDER
     Dosage: UNK

REACTIONS (1)
  - DIPLOPIA [None]
